FAERS Safety Report 13935447 (Version 2)
Quarter: 2017Q3

REPORT INFORMATION
  Report Type: Report from Study
  Country: CR (occurrence: CR)
  Receive Date: 20170905
  Receipt Date: 20170913
  Transmission Date: 20171127
  Serious: Yes (Other)
  Sender: FDA-Public Use
  Company Number: PHHY2017CR129924

PATIENT
  Sex: Male
  Weight: 80.73 kg

DRUGS (1)
  1. EXFORGE [Suspect]
     Active Substance: AMLODIPINE BESYLATE\VALSARTAN
     Indication: HYPERTENSION
     Dosage: 1 DF, QD (AMLODIPINE 5 MG/VALSARTAN 160 MG)
     Route: 065

REACTIONS (2)
  - Memory impairment [Unknown]
  - Dementia Alzheimer^s type [Unknown]
